FAERS Safety Report 6171864-9 (Version None)
Quarter: 2009Q2

REPORT INFORMATION
  Report Type: 
  Country: None (occurrence: None)
  Receive Date: 20090428
  Receipt Date: 20090428
  Transmission Date: 20091009
  Serious: Yes (Hospitalization)
  Sender: FDA-Public Use
  Company Number: None

PATIENT
  Age: 54 Year
  Sex: Male
  Weight: 76 kg

DRUGS (2)
  1. DIDANOSINE [Suspect]
     Indication: ACQUIRED IMMUNODEFICIENCY SYNDROME
     Dosage: 400 MG EVERY DAY PO
     Route: 048
     Dates: start: 20070514, end: 20090122
  2. DIDANOSINE [Suspect]
     Indication: HIV INFECTION
     Dosage: 400 MG EVERY DAY PO
     Route: 048
     Dates: start: 20070514, end: 20090122

REACTIONS (1)
  - PANCREATITIS ACUTE [None]
